FAERS Safety Report 5934068-8 (Version None)
Quarter: 2008Q4

REPORT INFORMATION
  Report Type: 
  Country: None (occurrence: None)
  Receive Date: 20081029
  Receipt Date: 20081021
  Transmission Date: 20090506
  Serious: Yes (Hospitalization)
  Sender: FDA-Public Use
  Company Number: JP-MERCK-0810USA04195

PATIENT
  Age: 77 Year
  Sex: Male

DRUGS (8)
  1. PEPCID RPD [Suspect]
     Indication: REFLUX OESOPHAGITIS
     Route: 048
     Dates: start: 20071117, end: 20080919
  2. NITRODERM [Concomitant]
     Route: 065
     Dates: start: 20071117, end: 20080919
  3. MAGNESIUM OXIDE [Concomitant]
     Route: 048
     Dates: start: 20071117, end: 20080919
  4. PURSENNID [Concomitant]
     Route: 048
     Dates: start: 20071117, end: 20080919
  5. BIOFERMIN [Concomitant]
     Route: 048
     Dates: start: 20071117, end: 20080919
  6. ACTOS [Concomitant]
     Route: 048
     Dates: start: 20071117, end: 20080919
  7. BASEN [Concomitant]
     Route: 048
     Dates: start: 20071117, end: 20080919
  8. DIOVAN [Concomitant]
     Route: 048
     Dates: start: 20071117, end: 20080919

REACTIONS (1)
  - APLASTIC ANAEMIA [None]
